FAERS Safety Report 6854111 (Version 5)
Quarter: 2013Q1

REPORT INFORMATION
  Report Type: Spontaneous
  Country: US (occurrence: US)
  Receive Date: 20081216
  Receipt Date: 20130107
  Transmission Date: 20140127
  Serious: Yes (Hospitalization)
  Sender: FDA-Public Use
  Company Number: US-BIOGENIDEC-2008BI033404

PATIENT
  Age: 63 Year
  Sex: Female

DRUGS (5)
  1. AVONEX [Suspect]
     Indication: MULTIPLE SCLEROSIS
     Route: 030
     Dates: start: 19960201, end: 200308
  2. AVONEX [Suspect]
     Indication: MULTIPLE SCLEROSIS
     Route: 030
     Dates: start: 200308
  3. TYLENOL WITH CODEINE [Concomitant]
     Indication: BACK PAIN
  4. TYLENOL WITH CODEINE [Concomitant]
     Indication: SCIATICA
  5. TYLENOL WITH CODEINE [Concomitant]
     Indication: SPONDYLITIS

REACTIONS (10)
  - Back pain [Recovered/Resolved]
  - Sciatica [Recovered/Resolved]
  - Infection [Not Recovered/Not Resolved]
  - Chondropathy [Unknown]
  - Spondylitis [Not Recovered/Not Resolved]
  - Local swelling [Recovered/Resolved]
  - Hypoaesthesia [Unknown]
  - Anxiety [Recovered/Resolved]
  - Alopecia [Not Recovered/Not Resolved]
  - Influenza like illness [Recovered/Resolved]
